FAERS Safety Report 7110611-0 (Version None)
Quarter: 2010Q4

REPORT INFORMATION
  Report Type: 
  Country: None (occurrence: None)
  Receive Date: 20101118
  Receipt Date: 20101110
  Transmission Date: 20110411
  Serious: Yes (Other)
  Sender: FDA-Public Use
  Company Number: DE-ROCHE-741788

PATIENT

DRUGS (1)
  1. PEGASYS [Suspect]
     Indication: HEPATITIS
     Route: 065

REACTIONS (1)
  - OSMOTIC DEMYELINATION SYNDROME [None]
